FAERS Safety Report 6129365-X (Version None)
Quarter: 2009Q1

REPORT INFORMATION
  Report Type: 
  Country: None (occurrence: None)
  Receive Date: 20090324
  Receipt Date: 20090324
  Transmission Date: 20090719
  Serious: Yes (Life-Threatening, Hospitalization, Disabling)
  Sender: FDA-Public Use
  Company Number: PHHO2003PL16897

PATIENT
  Sex: Female
  Weight: 80 kg

DRUGS (2)
  1. CGS 20267 T30748+ [Suspect]
     Indication: BREAST CANCER
     Dosage: 2.5 MG, QD
     Route: 048
     Dates: start: 20020525, end: 20030917
  2. BIOSOTAL [Suspect]

REACTIONS (5)
  - APHASIA [None]
  - CEREBROVASCULAR ACCIDENT [None]
  - CONCOMITANT DISEASE PROGRESSION [None]
  - HEMIPARESIS [None]
  - LOSS OF CONSCIOUSNESS [None]
